FAERS Safety Report 15796753 (Version 1)
Quarter: 2018Q4

REPORT INFORMATION
  Report Type: Spontaneous
  Country: US (occurrence: US)
  Receive Date: 20181231
  Receipt Date: 20181231
  Transmission Date: 20190205
  Serious: No
  Sender: FDA-Public Use
  Company Number: None

PATIENT

DRUGS (2)
  1. BICILLIN L-A [Suspect]
     Active Substance: PENICILLIN G BENZATHINE
     Dosage: ?          OTHER STRENGTH:600,000 UNIT;?
  2. BICILLIN C-R [Suspect]
     Active Substance: PENICILLIN G BENZATHINE\PENICILLIN G PROCAINE
     Dosage: ?          OTHER STRENGTH:1,200,000 UNIT;?

REACTIONS (5)
  - Product use complaint [None]
  - Product appearance confusion [None]
  - Physical product label issue [None]
  - Product use issue [None]
  - Product formulation issue [None]
